FAERS Safety Report 23778382 (Version 1)
Quarter: 2024Q2

REPORT INFORMATION
  Report Type: Spontaneous
  Country: US (occurrence: None)
  Receive Date: 20240424
  Receipt Date: 20240424
  Transmission Date: 20240716
  Serious: No
  Sender: FDA-Public Use
  Company Number: None

PATIENT
  Age: 44 Year
  Sex: Female
  Weight: 97.2 kg

DRUGS (3)
  1. FLUCONAZOLE [Suspect]
     Active Substance: FLUCONAZOLE
     Indication: Vulvovaginal mycotic infection
     Dates: start: 20240419, end: 20240422
  2. TIROSINT [Suspect]
     Active Substance: LEVOTHYROXINE SODIUM
  3. Tirosint 150mcg [Concomitant]

REACTIONS (2)
  - Therapeutic product effect decreased [None]
  - Drug interaction [None]

NARRATIVE: CASE EVENT DATE: 20240423
